FAERS Safety Report 5307565-6 (Version None)
Quarter: 2007Q2

REPORT INFORMATION
  Report Type: 
  Country: None (occurrence: None)
  Receive Date: 20070425
  Receipt Date: 20070418
  Transmission Date: 20071010
  Serious: Yes (Other)
  Sender: FDA-Public Use
  Company Number: US-PFIZER INC-2007031711

PATIENT
  Sex: Female

DRUGS (1)
  1. XALATAN [Suspect]
     Route: 047

REACTIONS (7)
  - EYE PRURITUS [None]
  - EYELASH THICKENING [None]
  - GROWTH OF EYELASHES [None]
  - IRIS HYPERPIGMENTATION [None]
  - MACULAR DEGENERATION [None]
  - OCULAR HYPERAEMIA [None]
  - VISION BLURRED [None]
